FAERS Safety Report 11811535 (Version 3)
Quarter: 2016Q1

REPORT INFORMATION
  Report Type: Spontaneous
  Country: US (occurrence: US)
  Receive Date: 20151208
  Receipt Date: 20160209
  Transmission Date: 20160525
  Serious: Yes (Other)
  Sender: FDA-Public Use
  Company Number: US-BAYER-2015-479292

PATIENT
  Age: 17 Year
  Sex: Female

DRUGS (1)
  1. SKYLA [Suspect]
     Active Substance: LEVONORGESTREL
     Indication: CONTRACEPTION
     Dosage: 14 MCG/24HR, CONT
     Route: 015
     Dates: start: 20150508, end: 201508

REACTIONS (4)
  - Abortion spontaneous [None]
  - Haemorrhage in pregnancy [None]
  - Pregnancy with contraceptive device [Recovered/Resolved]
  - Expired device used [None]

NARRATIVE: CASE EVENT DATE: 20150508
